FAERS Safety Report 20296545 (Version 3)
Quarter: 2022Q2

REPORT INFORMATION
  Report Type: Spontaneous
  Country: US (occurrence: US)
  Receive Date: 20220105
  Receipt Date: 20220509
  Transmission Date: 20220721
  Serious: Yes (Hospitalization, Other)
  Sender: FDA-Public Use
  Company Number: US-ASTELLAS-2021US049134

PATIENT
  Age: 68 Year
  Sex: Male

DRUGS (9)
  1. PADCEV [Suspect]
     Active Substance: ENFORTUMAB VEDOTIN-EJFV
     Indication: Transitional cell carcinoma metastatic
     Dosage: 1.25 MG/KG, CYCLIC (ON D1 AND D8)
     Route: 065
     Dates: start: 20211123
  2. PADCEV [Suspect]
     Active Substance: ENFORTUMAB VEDOTIN-EJFV
     Dosage: 1.25 MG/KG, CYCLIC (ON D1 AND D8. SUSPECTED TOXICITY OCCURRED AFTER D8 DOSE)
     Route: 065
     Dates: start: 20211130
  3. ANASPAZ [Concomitant]
     Active Substance: HYOSCYAMINE SULFATE
     Indication: Muscle spasms
     Dosage: 1 DF, EVERY 6 HOURS (DISSOLVE 1 TAB ON TONGUE EVERY 6 HOURS AS NEEDED)
     Route: 065
     Dates: start: 20211110
  4. NARCAN [Concomitant]
     Active Substance: NALOXONE HYDROCHLORIDE
     Indication: Drug use disorder
     Dosage: USE 1 DOSE INTO 1 NOSTRIL AS NEEDED, DONOT PRIME OR TEST THE INHALER PRIOR TO ADMINISTRATION
     Route: 050
     Dates: start: 20211109
  5. TENORMIN [Concomitant]
     Active Substance: ATENOLOL
     Indication: Blood pressure measurement
     Dosage: 25 MG, EVERY 12 HOURS (HOLD IF SYSTOLIC BP LESS THAN 110 AND/HR LESS THAN 60)
     Route: 048
  6. DURAGESIC [Concomitant]
     Active Substance: FENTANYL
     Indication: Product used for unknown indication
     Dosage: 37.5 MCG/HR 1 PATCH ON SKIN EVERY 72 HOURS. REMOVE OLD PATCH BEFORE REPLACING NEW PATCH EVERY 3 DAYS
     Route: 058
     Dates: start: 20211120
  7. HYDROMORPHONE HCL [Concomitant]
     Active Substance: HYDROMORPHONE HYDROCHLORIDE
     Indication: Product used for unknown indication
     Dosage: 1 MG, 4 TIMES DAILY AS NEEDED
     Route: 048
  8. ZYPREXA [Concomitant]
     Active Substance: OLANZAPINE
     Indication: Anxiety
     Dosage: 1 DF, TWICE DAILY AS NEEDED
     Route: 048
     Dates: start: 20211110
  9. MIRALAX [Concomitant]
     Active Substance: POLYETHYLENE GLYCOL 3350
     Indication: Constipation
     Dosage: 17 G, ONCE DAILY AS NEEDED BUY OVER THE COUNTER HOLD FOR LOOSE STOOLS
     Route: 048
     Dates: start: 20211110

REACTIONS (8)
  - Neutropenia [Not Recovered/Not Resolved]
  - Blister [Not Recovered/Not Resolved]
  - Staphylococcal infection [Recovered/Resolved]
  - Intertrigo [Recovered/Resolved]
  - Mucosal inflammation [Not Recovered/Not Resolved]
  - Wound infection [Not Recovered/Not Resolved]
  - Toxicity to various agents [Unknown]
  - Exfoliative rash [Unknown]

NARRATIVE: CASE EVENT DATE: 20211201
